FAERS Safety Report 9648241 (Version 1)
Quarter: 2013Q4

REPORT INFORMATION
  Report Type: Spontaneous
  Country: US (occurrence: US)
  Receive Date: 20131028
  Receipt Date: 20131028
  Transmission Date: 20140711
  Serious: No
  Sender: FDA-Public Use
  Company Number: US-JNJFOC-20131008877

PATIENT
  Sex: Female

DRUGS (2)
  1. INVEGA [Suspect]
     Indication: BIPOLAR DISORDER
     Dosage: 2-3 TABLETS PER DAY
     Route: 048
     Dates: start: 2011, end: 201304
  2. RISPERIDONE [Suspect]
     Indication: BIPOLAR DISORDER
     Route: 048
     Dates: start: 201304, end: 201307

REACTIONS (5)
  - Incorrect dose administered [Recovered/Resolved]
  - Weight increased [Unknown]
  - Gastrointestinal disorder [Unknown]
  - Increased appetite [Unknown]
  - Constipation [Unknown]
